FAERS Safety Report 6648242-9 (Version None)
Quarter: 2010Q1

REPORT INFORMATION
  Report Type: 
  Country: None (occurrence: None)
  Receive Date: 20100318
  Receipt Date: 20100305
  Transmission Date: 20100710
  Serious: Yes (Disabling)
  Sender: FDA-Public Use
  Company Number: 008576

PATIENT
  Age: 70 Year
  Sex: Female

DRUGS (1)
  1. CIMZIA (CIMZIA) [Suspect]
     Indication: RHEUMATOID ARTHRITIS
     Dosage: SUBCUTANEOUS
     Route: 058
     Dates: start: 20100101

REACTIONS (1)
  - ARTHRITIS BACTERIAL [None]
